FAERS Safety Report 5454314-7 (Version None)
Quarter: 2007Q3

REPORT INFORMATION
  Report Type: 
  Country: None (occurrence: None)
  Receive Date: 20070917
  Receipt Date: 20060815
  Transmission Date: 20080115
  Serious: No
  Sender: FDA-Public Use
  Company Number: US-ASTRAZENECA-2006UW16221

PATIENT
  Age: 27 Year
  Sex: Female
  Weight: 90.7 kg

DRUGS (7)
  1. SEROQUEL [Suspect]
     Indication: POST-TRAUMATIC STRESS DISORDER
     Route: 048
     Dates: start: 20050801
  2. SEROQUEL [Suspect]
     Route: 048
  3. SEROQUEL [Suspect]
     Route: 048
  4. SEROQUEL [Suspect]
     Route: 048
     Dates: start: 20060308, end: 20060601
  5. DOXYCYCLINE [Concomitant]
     Indication: ACNE
  6. CLARITIN [Concomitant]
     Indication: MULTIPLE ALLERGIES
  7. ZOLOFT [Concomitant]
     Route: 048

REACTIONS (5)
  - BLOOD PRESSURE INCREASED [None]
  - LETHARGY [None]
  - MUSCULOSKELETAL STIFFNESS [None]
  - POLLAKIURIA [None]
  - ROAD TRAFFIC ACCIDENT [None]
